FAERS Safety Report 15007275 (Version 1)
Quarter: 2018Q2

REPORT INFORMATION
  Report Type: Spontaneous
  Country: JP (occurrence: JP)
  Receive Date: 20180613
  Receipt Date: 20180613
  Transmission Date: 20180711
  Serious: Yes (Life-Threatening)
  Sender: FDA-Public Use
  Company Number: JP-009507513-1806JPN004514

PATIENT
  Age: 49 Year
  Sex: Male

DRUGS (4)
  1. BORIC ACID [Concomitant]
     Active Substance: BORIC ACID
     Dosage: UNKNOWN
     Route: 065
  2. REFLEX [Suspect]
     Active Substance: MIRTAZAPINE
     Dosage: 1950 MG
     Route: 048
  3. NOREPINEPHRINE. [Suspect]
     Active Substance: NOREPINEPHRINE
     Dosage: UNKNOWN
     Route: 048
     Dates: start: 20180531
  4. REFLEX [Suspect]
     Active Substance: MIRTAZAPINE
     Indication: DEPRESSION
     Dosage: UNKNOWN
     Route: 048

REACTIONS (1)
  - Cardio-respiratory arrest [Unknown]

NARRATIVE: CASE EVENT DATE: 20180531
